FAERS Safety Report 19212798 (Version 1)
Quarter: 2021Q2

REPORT INFORMATION
  Report Type: Spontaneous
  Country: US (occurrence: US)
  Receive Date: 20210504
  Receipt Date: 20210504
  Transmission Date: 20210717
  Serious: No
  Sender: FDA-Public Use
  Company Number: NVSC2021US100876

PATIENT
  Sex: Male

DRUGS (1)
  1. VOLTAREN [Suspect]
     Active Substance: DICLOFENAC SODIUM
     Indication: PERIPHERAL SWELLING
     Dosage: UNK
     Route: 065
     Dates: start: 20210324

REACTIONS (4)
  - Condition aggravated [Unknown]
  - Product use in unapproved indication [Unknown]
  - Inflammation [Unknown]
  - Product use issue [Unknown]

NARRATIVE: CASE EVENT DATE: 20210324
